FAERS Safety Report 7868178-5 (Version None)
Quarter: 2011Q4

REPORT INFORMATION
  Report Type: 
  Country: None (occurrence: None)
  Receive Date: 20111028
  Receipt Date: 20111023
  Transmission Date: 20120403
  Serious: Yes (Other)
  Sender: FDA-Public Use
  Company Number: CA-ABBOTT-11P-028-0866871-00

PATIENT
  Sex: Male
  Weight: 81.72 kg

DRUGS (14)
  1. MELOXICAM [Concomitant]
     Indication: PSORIATIC ARTHROPATHY
     Route: 048
  2. MULTI-VITAMIN [Concomitant]
     Indication: PRODUCT USED FOR UNKNOWN INDICATION
  3. PRILOSEC [Concomitant]
     Indication: GASTROOESOPHAGEAL REFLUX DISEASE
     Route: 048
  4. HUMIRA [Suspect]
     Indication: PSORIATIC ARTHROPATHY
     Route: 058
     Dates: start: 20100901, end: 20100904
  5. PLAQUENIL [Concomitant]
     Indication: PSORIATIC ARTHROPATHY
     Route: 048
  6. METHOTREXATE [Concomitant]
     Indication: PSORIATIC ARTHROPATHY
     Dosage: WEEKLY
     Route: 048
  7. ACTONEL [Concomitant]
     Indication: PSORIATIC ARTHROPATHY
     Route: 048
  8. ACTONEL [Concomitant]
     Dosage: STRONGER DOSE OF 150MG
     Route: 048
  9. MELOXICAM [Concomitant]
     Indication: ANTIINFLAMMATORY THERAPY
  10. FOLIC ACID [Concomitant]
     Indication: PSORIATIC ARTHROPATHY
     Dosage: WEEKLY
     Route: 048
  11. PREDNISONE [Concomitant]
     Route: 048
  12. PREDNISONE [Concomitant]
     Indication: PSORIATIC ARTHROPATHY
     Route: 048
  13. DOMPERIDONE [Concomitant]
     Indication: PSORIATIC ARTHROPATHY
     Route: 048
  14. VITAMIN D [Concomitant]
     Indication: VITAMIN SUPPLEMENTATION
     Route: 048

REACTIONS (6)
  - FINGER DEFORMITY [None]
  - PNEUMONIA [None]
  - PRODUCTIVE COUGH [None]
  - PSORIATIC ARTHROPATHY [None]
  - NASOPHARYNGITIS [None]
  - PULMONARY CONGESTION [None]
